FAERS Safety Report 7805292-4 (Version None)
Quarter: 2011Q4

REPORT INFORMATION
  Report Type: 
  Country: None (occurrence: None)
  Receive Date: 20111010
  Receipt Date: 20111004
  Transmission Date: 20120403
  Serious: Yes (Other)
  Sender: FDA-Public Use
  Company Number: US-PFIZER INC-2011237618

PATIENT
  Sex: Female

DRUGS (3)
  1. GABAPENTIN [Suspect]
     Dosage: 100 MG, UNK
  2. OXYCODONE HCL [Suspect]
  3. GABAPENTIN [Suspect]
     Dosage: 300 MG

REACTIONS (5)
  - MEMORY IMPAIRMENT [None]
  - NERVOUSNESS [None]
  - CLUMSINESS [None]
  - PAIN [None]
  - INSOMNIA [None]
